FAERS Safety Report 9668398 (Version 1)
Quarter: 2013Q4

REPORT INFORMATION
  Report Type: Spontaneous
  Country: US (occurrence: US)
  Receive Date: 20131104
  Receipt Date: 20131104
  Transmission Date: 20140711
  Serious: Yes (Other)
  Sender: FDA-Public Use
  Company Number: US-AMGEN-USASP2013077039

PATIENT
  Age: 55 Year
  Sex: Female

DRUGS (1)
  1. ENBREL [Suspect]
     Indication: RHEUMATOID ARTHRITIS
     Dosage: 50 MG, QWK
     Route: 065
     Dates: start: 201212

REACTIONS (5)
  - Hepatitis [Not Recovered/Not Resolved]
  - Scab [Not Recovered/Not Resolved]
  - Anxiety [Unknown]
  - Tinea pedis [Not Recovered/Not Resolved]
  - Onychomycosis [Not Recovered/Not Resolved]
